FAERS Safety Report 11379723 (Version 1)
Quarter: 2015Q3

REPORT INFORMATION
  Report Type: Spontaneous
  Country: US (occurrence: None)
  Receive Date: 20150813
  Receipt Date: 20150813
  Transmission Date: 20151125
  Serious: Yes (Hospitalization)
  Sender: FDA-Public Use
  Company Number: None

PATIENT
  Age: 60 Year
  Sex: Female
  Weight: 73.03 kg

DRUGS (5)
  1. LISINOPRIL. [Suspect]
     Active Substance: LISINOPRIL
     Indication: HYPERTENSION
     Route: 048
     Dates: start: 20150407, end: 20150804
  2. HUMALOG [Concomitant]
     Active Substance: INSULIN LISPRO
  3. LEVERMIR [Concomitant]
  4. ONE A DAY VITAMINS [Concomitant]
  5. ASPRIN [Concomitant]
     Active Substance: ASPIRIN

REACTIONS (7)
  - Cough [None]
  - Vomiting [None]
  - Dizziness [None]
  - Chromaturia [None]
  - Respiratory rate increased [None]
  - Vision blurred [None]
  - Asthenia [None]

NARRATIVE: CASE EVENT DATE: 20150806
